FAERS Safety Report 15138676 (Version 1)
Quarter: 2018Q3

REPORT INFORMATION
  Report Type: Report from Study
  Country: JP (occurrence: JP)
  Receive Date: 20180713
  Receipt Date: 20180713
  Transmission Date: 20181010
  Serious: Yes (Other)
  Sender: FDA-Public Use
  Company Number: JP-ROCHE-2135953

PATIENT
  Age: 78 Year
  Sex: Female
  Weight: 42 kg

DRUGS (2)
  1. TEMOZOLOMIDE. [Suspect]
     Active Substance: TEMOZOLOMIDE
     Indication: MALIGNANT GLIOMA
     Route: 048
     Dates: start: 20170427, end: 20171215
  2. BEVACIZUMAB. [Suspect]
     Active Substance: BEVACIZUMAB
     Indication: MALIGNANT GLIOMA
     Route: 041
     Dates: start: 20170427, end: 20171130

REACTIONS (2)
  - Proteinuria [Recovered/Resolved]
  - Lymphopenia [Recovered/Resolved]

NARRATIVE: CASE EVENT DATE: 20170815
